FAERS Safety Report 10444738 (Version 4)
Quarter: 2015Q1

REPORT INFORMATION
  Report Type: Spontaneous
  Country: US (occurrence: US)
  Receive Date: 20140910
  Receipt Date: 20150223
  Transmission Date: 20150720
  Serious: Yes (Life-Threatening, Hospitalization)
  Sender: FDA-Public Use
  Company Number: US-BAYER-2014-131939

PATIENT
  Age: 34 Year
  Sex: Female
  Weight: 73.92 kg

DRUGS (4)
  1. MIRENA [Suspect]
     Active Substance: LEVONORGESTREL
     Indication: MENORRHAGIA
  2. MIRENA [Suspect]
     Active Substance: LEVONORGESTREL
     Indication: CONTRACEPTION
     Dosage: 20 MCG/24HR, CONT
     Route: 015
     Dates: start: 20091124, end: 20130301
  3. BUSPAR [Concomitant]
     Active Substance: BUSPIRONE HYDROCHLORIDE
  4. LABETALOL [Concomitant]
     Active Substance: LABETALOL\LABETALOL HYDROCHLORIDE

REACTIONS (7)
  - Uterine perforation [None]
  - Injury [None]
  - General physical health deterioration [None]
  - Off label use [None]
  - Abdominal pain [None]
  - Infection [None]
  - Device dislocation [None]

NARRATIVE: CASE EVENT DATE: 20130206
